FAERS Safety Report 11171777 (Version 1)
Quarter: 2015Q2

REPORT INFORMATION
  Report Type: Spontaneous
  Country: KR (occurrence: KR)
  Receive Date: 20150608
  Receipt Date: 20150608
  Transmission Date: 20150821
  Serious: Yes (Death, Hospitalization)
  Sender: FDA-Public Use
  Company Number: KR-BAYER-2015-278367

PATIENT
  Age: 61 Year
  Sex: Male

DRUGS (4)
  1. NEXAVAR [Suspect]
     Active Substance: SORAFENIB
     Indication: HEPATOCELLULAR CARCINOMA
     Dosage: 800 MG, DAILY
     Route: 048
     Dates: start: 20120216, end: 20120228
  2. NEXAVAR [Suspect]
     Active Substance: SORAFENIB
     Indication: HEPATOCELLULAR CARCINOMA
     Dosage: 400 MG, DAILY
     Route: 048
     Dates: start: 20111221, end: 20120109
  3. NEXAVAR [Suspect]
     Active Substance: SORAFENIB
     Indication: HEPATOCELLULAR CARCINOMA
     Dosage: 400 MG, DAILY
     Route: 048
     Dates: start: 20120120, end: 20120215
  4. WARFARIN [Concomitant]
     Active Substance: WARFARIN
     Indication: THROMBOSIS

REACTIONS (9)
  - Gastric ulcer [None]
  - Gastric ulcer [Recovered/Resolved]
  - Blood bilirubin increased [Fatal]
  - Hepatic failure [Fatal]
  - Haemorrhage [None]
  - Gastrooesophageal reflux disease [None]
  - Peritoneal adhesions [None]
  - Gastric ulcer perforation [None]
  - Faeces discoloured [None]

NARRATIVE: CASE EVENT DATE: 2012
